FAERS Safety Report 7764574-5 (Version None)
Quarter: 2011Q3

REPORT INFORMATION
  Report Type: 
  Country: None (occurrence: None)
  Receive Date: 20110921
  Receipt Date: 20110919
  Transmission Date: 20111222
  Serious: Yes (Other)
  Sender: FDA-Public Use
  Company Number: GB-PFIZER INC-2011152579

PATIENT
  Age: 51 Year
  Sex: Female

DRUGS (2)
  1. LEVOTHYROXINE SODIUM [Concomitant]
     Dosage: 25 MG, 1X/DAY
  2. VARENICLINE TARTRATE [Suspect]
     Dosage: 1 MG, 2X/DAY
     Route: 048
     Dates: start: 20110516, end: 20110701

REACTIONS (4)
  - CHEST PAIN [None]
  - ABDOMINAL DISTENSION [None]
  - BLISTER [None]
  - BLOOD PRESSURE INCREASED [None]
